FAERS Safety Report 8174774-0 (Version None)
Quarter: 2012Q1

REPORT INFORMATION
  Report Type: 
  Country: None (occurrence: None)
  Receive Date: 20120229
  Receipt Date: 20120223
  Transmission Date: 20120608
  Serious: Yes (Other)
  Sender: FDA-Public Use
  Company Number: NO-PFIZER INC-2012047962

PATIENT
  Age: 85 Year
  Sex: Male

DRUGS (2)
  1. XALATAN [Suspect]
     Indication: GLAUCOMA
     Dosage: RIGHT EYE
     Dates: start: 20070101, end: 20080101
  2. TRAVATAN [Suspect]
     Indication: GLAUCOMA
     Dosage: RIGHT EYE
     Dates: start: 20080101, end: 20100101

REACTIONS (2)
  - MALIGNANT MELANOMA [None]
  - PIGMENTATION DISORDER [None]
